FAERS Safety Report 16371345 (Version 2)
Quarter: 2019Q3

REPORT INFORMATION
  Report Type: Report from Study
  Country: US (occurrence: US)
  Receive Date: 20190530
  Receipt Date: 20190802
  Transmission Date: 20191004
  Serious: Yes (Other)
  Sender: FDA-Public Use
  Company Number: PHEH2019US022570

PATIENT
  Sex: Female

DRUGS (1)
  1. COSENTYX [Suspect]
     Active Substance: SECUKINUMAB
     Indication: PRODUCT USED FOR UNKNOWN INDICATION
     Route: 058

REACTIONS (11)
  - Cerebrovascular accident [Unknown]
  - Psychomotor hyperactivity [Unknown]
  - Condition aggravated [Unknown]
  - Depression [Unknown]
  - Osteoporosis [Unknown]
  - Mental disorder [Unknown]
  - Visual impairment [Unknown]
  - Depressed mood [Unknown]
  - Disturbance in attention [Unknown]
  - Anger [Unknown]
  - Stress [Unknown]
